FAERS Safety Report 5401091-1 (Version None)
Quarter: 2007Q3

REPORT INFORMATION
  Report Type: 
  Country: None (occurrence: None)
  Receive Date: 20070731
  Receipt Date: 20070705
  Transmission Date: 20080115
  Serious: Yes (Life-Threatening, Hospitalization, Disabling)
  Sender: FDA-Public Use
  Company Number: GB-JNJFOC-20070705961

PATIENT
  Age: 80 Year
  Sex: Female

DRUGS (6)
  1. TRAMADOL HCL [Suspect]
     Indication: PAIN IN EXTREMITY
     Route: 048
  2. ASPIRIN [Concomitant]
     Route: 065
  3. CARVEDILOL [Concomitant]
     Route: 065
  4. FUROSEMIDE [Concomitant]
     Route: 065
  5. LOSARTAN POTASSIUM [Concomitant]
     Route: 065
  6. NICORANDIL [Concomitant]
     Route: 065

REACTIONS (1)
  - CEREBROVASCULAR ACCIDENT [None]
